FAERS Safety Report 14768678 (Version 1)
Quarter: 2018Q2

REPORT INFORMATION
  Report Type: Report from Study
  Country: US (occurrence: US)
  Receive Date: 20180417
  Receipt Date: 20180417
  Transmission Date: 20180711
  Serious: Yes (Death)
  Sender: FDA-Public Use
  Company Number: US-AUROBINDO-AUR-APL-2018-020718

PATIENT
  Age: 55 Year
  Sex: Female

DRUGS (1)
  1. ACETAMINOPHEN. [Suspect]
     Active Substance: ACETAMINOPHEN
     Indication: PRODUCT USED FOR UNKNOWN INDICATION
     Route: 065

REACTIONS (8)
  - Toxicity to various agents [Fatal]
  - Hypoglycaemia [Fatal]
  - Anion gap [Fatal]
  - Thrombocytopenia [Fatal]
  - Coagulopathy [Fatal]
  - Hepatotoxicity [Fatal]
  - Hypotension [Fatal]
  - Acute kidney injury [Fatal]
